FAERS Safety Report 5720987-4 (Version None)
Quarter: 2008Q2

REPORT INFORMATION
  Report Type: 
  Country: None (occurrence: None)
  Receive Date: 20080429
  Receipt Date: 20080421
  Transmission Date: 20081010
  Serious: Yes (Hospitalization)
  Sender: FDA-Public Use
  Company Number: US-ASTRAZENECA-2008UW08145

PATIENT
  Age: 67 Year
  Sex: Female

DRUGS (8)
  1. CRESTOR [Suspect]
     Indication: BLOOD CHOLESTEROL INCREASED
     Route: 048
     Dates: start: 20080206, end: 20080101
  2. ZETIA [Concomitant]
  3. COLACE [Concomitant]
  4. ASPIRIN [Concomitant]
  5. FOSAMAX [Concomitant]
  6. KEPPRA [Concomitant]
  7. PLAVIX [Concomitant]
  8. SIMVASTATIN [Concomitant]

REACTIONS (4)
  - BLOOD CHOLESTEROL INCREASED [None]
  - CORONARY ARTERY OCCLUSION [None]
  - MYOCARDIAL INFARCTION [None]
  - PAIN IN EXTREMITY [None]
